FAERS Safety Report 9605705 (Version 1)
Quarter: 2013Q4

REPORT INFORMATION
  Report Type: Spontaneous
  Country: AT (occurrence: AT)
  Receive Date: 20131008
  Receipt Date: 20131008
  Transmission Date: 20140711
  Serious: Yes (Other)
  Sender: FDA-Public Use
  Company Number: PHHY2013AT110938

PATIENT
  Sex: Female

DRUGS (3)
  1. EBETREXAT [Suspect]
     Indication: POLYARTHRITIS
     Dosage: UNK UKN, UNK
  2. ILARIS [Suspect]
  3. HUMIRA [Suspect]

REACTIONS (8)
  - Juvenile idiopathic arthritis [Unknown]
  - Rash [Unknown]
  - Hyperhidrosis [Unknown]
  - Night sweats [Unknown]
  - Atypical pneumonia [Unknown]
  - Pyrexia [Unknown]
  - Mycoplasma infection [Unknown]
  - Activities of daily living impaired [Unknown]
